FAERS Safety Report 14650089 (Version 4)
Quarter: 2018Q3

REPORT INFORMATION
  Report Type: Spontaneous
  Country: NL (occurrence: NL)
  Receive Date: 20180316
  Receipt Date: 20180830
  Transmission Date: 20181010
  Serious: Yes (Life-Threatening)
  Sender: FDA-Public Use
  Company Number: NL-TEVA-2018-NL-868082

PATIENT
  Age: 84 Year
  Sex: Female
  Weight: 118 kg

DRUGS (13)
  1. AMLODIPINE TABLET 10MG [Concomitant]
     Dosage: ONCE A DAY 1 TABLET
  2. ACETYLSALICYLZUUR DISPERTABLET 80MG [Concomitant]
     Active Substance: ASPIRIN
     Dosage: ONCE A DAY 1 TABLET
  3. FUROSEMIDE TABLET 40MG [Concomitant]
     Active Substance: FUROSEMIDE
     Dosage: ONCE A DAY 1 TABLET
  4. FOSINOPRIL TABLET, 10 MG (MILLIGRAM) [Suspect]
     Active Substance: FOSINOPRIL
     Indication: HYPERTENSION
     Dosage: ONCE A DAY 1 TABLET
     Dates: start: 20091209, end: 20180109
  5. EUTHYROX TABLET 100MCG [Concomitant]
     Dosage: ONCE A DAY 1 TABLET
  6. ISOSORBIDEDINITRAAT TABLET SUBLINGUAAL 5MG [Concomitant]
     Dosage: IF NECESSARY
     Route: 060
  7. CLOPIDOGREL TABLET   75MG [Concomitant]
     Dosage: ONCE A DAY 1 TABLET
  8. METOPROLOL TABLET MGA 100MG (SUCCINAAT) [Concomitant]
     Active Substance: METOPROLOL
     Dosage: ONCE A DAY 1 TABLET
  9. ESTRIOL OVULE 0,5MG [Concomitant]
     Dosage: 0.5MG ON MONDAY
  10. PANTOPRAZOL TABLET MSR 40MG [Concomitant]
     Active Substance: PANTOPRAZOLE SODIUM
     Dosage: ONCE A DAY 1 TABLET
  11. METFORMIN [Concomitant]
     Active Substance: METFORMIN HYDROCHLORIDE
     Dosage: 3X PER DAY 1 PIECE
  12. SIMVASTATINE TABLET FO 40MG [Concomitant]
     Dosage: 1X PER DAY 1 PIECE
  13. INSULINE GLARGINE 100E/ML INJVLST PEN 300E=3ML [Concomitant]
     Dosage: 1 X PER DAY IN THE EVENING 6 EH

REACTIONS (4)
  - Swollen tongue [Recovering/Resolving]
  - Secretion discharge [Recovering/Resolving]
  - Dyspnoea [Recovering/Resolving]
  - Angioedema [Recovering/Resolving]

NARRATIVE: CASE EVENT DATE: 20180109
